FAERS Safety Report 7949964-X (Version None)
Quarter: 2011Q4

REPORT INFORMATION
  Report Type: 
  Country: None (occurrence: None)
  Receive Date: 20111130
  Receipt Date: 20111122
  Transmission Date: 20120403
  Serious: Yes (Other)
  Sender: FDA-Public Use
  Company Number: US-BAYER-2011-085134

PATIENT
  Age: 29 Year
  Sex: Female

DRUGS (1)
  1. MIRENA [Suspect]
     Indication: CONTRACEPTION
     Dosage: UNK, CONT
     Route: 015
     Dates: start: 20100622, end: 20111117

REACTIONS (5)
  - AMENORRHOEA [None]
  - DEVICE EXPULSION [None]
  - VAGINAL HAEMORRHAGE [None]
  - MEDICAL DEVICE COMPLICATION [None]
  - MENORRHAGIA [None]
